FAERS Safety Report 23718582 (Version 2)
Quarter: 2024Q2

REPORT INFORMATION
  Report Type: Spontaneous
  Country: AU (occurrence: AU)
  Receive Date: 20240408
  Receipt Date: 20240411
  Transmission Date: 20240716
  Serious: No
  Sender: FDA-Public Use
  Company Number: AU-EXELTIS PHARMACEUTICAL HOLDING, S.L.-2403AU02841

PATIENT
  Age: 20 Year
  Sex: Female

DRUGS (1)
  1. DROSPIRENONE [Suspect]
     Active Substance: DROSPIRENONE
     Indication: Product used for unknown indication
     Route: 048

REACTIONS (7)
  - Mental impairment [Recovering/Resolving]
  - Lethargy [Recovering/Resolving]
  - Loss of personal independence in daily activities [Unknown]
  - Somnolence [Unknown]
  - Hypoaesthesia [Unknown]
  - Crying [Unknown]
  - Fatigue [Unknown]
